FAERS Safety Report 21764482 (Version 2)
Quarter: 2023Q4

REPORT INFORMATION
  Report Type: Spontaneous
  Country: ES (occurrence: ES)
  Receive Date: 20221222
  Receipt Date: 20231003
  Transmission Date: 20240110
  Serious: Yes (Other)
  Sender: FDA-Public Use
  Company Number: ES-SUN PHARMACEUTICAL INDUSTRIES LTD-2022R1-369598

PATIENT
  Age: 33 Year
  Sex: Female

DRUGS (1)
  1. RISPERIDONE [Suspect]
     Active Substance: RISPERIDONE
     Indication: Schizoaffective disorder
     Dosage: 6 MILLIGRAM, DAILY
     Route: 065

REACTIONS (4)
  - Hyperprolactinaemia [Recovering/Resolving]
  - Extrapyramidal disorder [Recovering/Resolving]
  - Amenorrhoea [Recovering/Resolving]
  - Weight increased [Recovering/Resolving]
